FAERS Safety Report 24749633 (Version 2)
Quarter: 2025Q1

REPORT INFORMATION
  Report Type: Spontaneous
  Country: US (occurrence: US)
  Receive Date: 20241218
  Receipt Date: 20250131
  Transmission Date: 20250409
  Serious: No
  Sender: PFIZER
  Company Number: US-PFIZER INC-PV202400149938

PATIENT

DRUGS (2)
  1. GENOTROPIN [Suspect]
     Active Substance: SOMATROPIN
     Dosage: INJECT 1.4 MG UNDER THE SKIN ALTERNATING WITH 1.6 MG 1 TIME A DAY
  2. GENOTROPIN [Suspect]
     Active Substance: SOMATROPIN
     Dosage: INJECT 1.4 MG UNDER THE SKIN ALTERNATING WITH 1.6 MG 1 TIME A DAY

REACTIONS (3)
  - Drug dose omission by device [Unknown]
  - Device breakage [Unknown]
  - Device material issue [Unknown]
